FAERS Safety Report 8970873 (Version 1)
Quarter: 2012Q4

REPORT INFORMATION
  Report Type: 
  Country: US (occurrence: US)
  Receive Date: 20121218
  Receipt Date: 20121218
  Transmission Date: 20130627
  Serious: Yes (Hospitalization, Other)
  Sender: FDA-Public Use
  Company Number: US-PFIZER INC-2012316811

PATIENT
  Age: 3 Year
  Sex: Male
  Weight: 29 kg

DRUGS (1)
  1. GENOTROPIN MQ [Suspect]
     Indication: GROWTH HORMONE DEFICIENCY
     Dosage: 1.2 mg, 1x/day
     Dates: start: 2007, end: 201208

REACTIONS (3)
  - Ear neoplasm [Recovered/Resolved]
  - Ear infection [Not Recovered/Not Resolved]
  - Cerumen impaction [Unknown]
